FAERS Safety Report 23300899 (Version 1)
Quarter: 2023Q4

REPORT INFORMATION
  Report Type: Spontaneous
  Country: US (occurrence: None)
  Receive Date: 20231214
  Receipt Date: 20231214
  Transmission Date: 20240110
  Serious: Yes (Life-Threatening, Hospitalization)
  Sender: FDA-Public Use
  Company Number: None

PATIENT
  Age: 55 Year
  Sex: Male
  Weight: 88.45 kg

DRUGS (2)
  1. DEVICE [Suspect]
     Active Substance: DEVICE
     Indication: Pulmonary arterial hypertension
     Dates: start: 20231020, end: 20231023
  2. REMODULIN [Suspect]
     Active Substance: TREPROSTINIL

REACTIONS (2)
  - Device malfunction [None]
  - Drug dose omission by device [None]

NARRATIVE: CASE EVENT DATE: 20231023
